FAERS Safety Report 8584014-6 (Version None)
Quarter: 2012Q3

REPORT INFORMATION
  Report Type: 
  Country: None (occurrence: None)
  Receive Date: 20120810
  Receipt Date: 20120724
  Transmission Date: 20120928
  Serious: No
  Sender: FDA-Public Use
  Company Number: US-009507513-1207USA009580

PATIENT

DRUGS (2)
  1. AZASITE [Suspect]
     Dosage: 1 DROP IN EACH EYE, QD
     Route: 047
  2. AZASITE [Suspect]
     Dosage: 1 DROP IN EACH EYE, BID
     Route: 047

REACTIONS (3)
  - NO ADVERSE EVENT [None]
  - DRUG PRESCRIBING ERROR [None]
  - PRODUCT PACKAGING QUANTITY ISSUE [None]
